FAERS Safety Report 9215436 (Version 2)
Quarter: 2013Q2

REPORT INFORMATION
  Report Type: Spontaneous
  Country: US (occurrence: US)
  Receive Date: 20130405
  Receipt Date: 20130416
  Transmission Date: 20140414
  Serious: Yes (Death)
  Sender: FDA-Public Use
  Company Number: US-GILEAD-2013-0072932

PATIENT
  Age: 71 Year
  Sex: Male

DRUGS (2)
  1. LETAIRIS [Suspect]
     Indication: COR PULMONALE CHRONIC
     Route: 048
     Dates: start: 20130206, end: 20130320
  2. LETAIRIS [Suspect]
     Indication: LIVER DISORDER

REACTIONS (3)
  - Death [Fatal]
  - Fluid overload [Unknown]
  - Nasal congestion [Unknown]
